FAERS Safety Report 6468468-7 (Version None)
Quarter: 2009Q4

REPORT INFORMATION
  Report Type: 
  Country: None (occurrence: None)
  Receive Date: 20091203
  Receipt Date: 20091127
  Transmission Date: 20100525
  Serious: Yes (Death, Hospitalization)
  Sender: FDA-Public Use
  Company Number: GB-ELI_LILLY_AND_COMPANY-GB200911007211

PATIENT
  Sex: Female
  Weight: 71.5 kg

DRUGS (12)
  1. GEMCITABINE HCL [Suspect]
     Indication: DIFFUSE LARGE B-CELL LYMPHOMA
     Dosage: 1254 MG, UNK
     Route: 042
     Dates: start: 20091107
  2. CYCLOPHOSPHAMIDE [Suspect]
     Indication: DIFFUSE LARGE B-CELL LYMPHOMA
     Dosage: 1240 MG, UNK
     Route: 042
     Dates: start: 20091107
  3. VINCRISTINE SULFATE [Suspect]
     Indication: DIFFUSE LARGE B-CELL LYMPHOMA
     Dosage: 2 MG, UNK
     Route: 042
     Dates: start: 20091107
  4. RITUXIMAB [Suspect]
     Indication: DIFFUSE LARGE B-CELL LYMPHOMA
     Dosage: 620 MG, UNK
     Route: 042
     Dates: start: 20091107
  5. OTHER PHARMA COMPANY INV DRUG [Suspect]
     Indication: DIFFUSE LARGE B-CELL LYMPHOMA
     Dosage: 100 MG, DAY 1 + 15
     Route: 048
     Dates: start: 20091107
  6. ATENOLOL [Concomitant]
     Indication: CARDIAC DISORDER
     Dosage: 50 MG, 2/D
     Route: 048
  7. BENDROFLUMETHIAZIDE [Concomitant]
     Indication: CARDIAC DISORDER
     Dosage: 25 MG, DAILY (1/D)
     Route: 048
  8. ISOSORBIDE MONONITRATE [Concomitant]
     Indication: CARDIAC DISORDER
     Dosage: 25 MG, DAILY (1/D)
     Route: 048
  9. ALLOPURINOL [Concomitant]
     Indication: GOUT
     Dosage: 300 MG, DAILY (1/D)
     Route: 048
  10. NITROGLYCERIN [Concomitant]
     Indication: CARDIAC DISORDER
     Dosage: 1 D/F, AS NEEDED
     Route: 048
  11. NITROGLYCERIN [Concomitant]
     Dosage: 400 (1/2 PUFFS), AS NEEDED
     Route: 048
     Dates: start: 20091107, end: 20091107
  12. HYPROMELLOSE [Concomitant]
     Indication: EYE DISORDER
     Dosage: 1 D/F, DAILY (1/D)
     Route: 047

REACTIONS (1)
  - PULMONARY OEDEMA [None]
